FAERS Safety Report 5048556-2 (Version None)
Quarter: 2006Q3

REPORT INFORMATION
  Report Type: 
  Country: None (occurrence: None)
  Receive Date: 20060712
  Receipt Date: 20060406
  Transmission Date: 20061208
  Serious: Yes (Other)
  Sender: FDA-Public Use
  Company Number: 2006GB00590

PATIENT
  Sex: Female

DRUGS (2)
  1. OMEPRAZOLE [Suspect]
     Indication: HIATUS HERNIA
     Dosage: REDUCED TO 10MG
     Route: 048
     Dates: start: 19960101, end: 20010101
  2. OMEPRAZOLE [Suspect]
     Dosage: REDUCED FROM 20MG
     Route: 048
     Dates: start: 20010101

REACTIONS (4)
  - BURNING SENSATION [None]
  - ILL-DEFINED DISORDER [None]
  - PARAESTHESIA [None]
  - SKIN EXFOLIATION [None]
